FAERS Safety Report 15344747 (Version 4)
Quarter: 2019Q1

REPORT INFORMATION
  Report Type: Spontaneous
  Country: DE (occurrence: DE)
  Receive Date: 20180903
  Receipt Date: 20190108
  Transmission Date: 20190417
  Serious: Yes (Other)
  Sender: FDA-Public Use
  Company Number: PHHY2018DE082587

PATIENT
  Age: 74 Year
  Sex: Female

DRUGS (7)
  1. GLIVEC [Suspect]
     Active Substance: IMATINIB MESYLATE
     Indication: GASTROINTESTINAL STROMAL TUMOUR
     Dosage: 400 MG, QD
     Route: 048
     Dates: start: 201712, end: 201809
  2. GLIVEC [Suspect]
     Active Substance: IMATINIB MESYLATE
     Dosage: AT REDUCED DOSE
     Route: 048
  3. L-THYROX [Concomitant]
     Active Substance: LEVOTHYROXINE SODIUM
     Indication: THYROIDECTOMY
     Dosage: 100 UG, QD
     Route: 048
  4. LEVODOPA [Concomitant]
     Active Substance: LEVODOPA
     Indication: RESTLESS LEGS SYNDROME
     Route: 048
     Dates: start: 201807
  5. BISOPROLOL [Concomitant]
     Active Substance: BISOPROLOL
     Indication: HYPERTENSION
     Dosage: 5 MG, QD
     Route: 048
  6. PANTOZOL [Concomitant]
     Active Substance: PANTOPRAZOLE SODIUM
     Indication: PRODUCT USED FOR UNKNOWN INDICATION
     Dosage: 20 MG, QD
     Route: 048
  7. AMLODIPINE [Concomitant]
     Active Substance: AMLODIPINE BESYLATE
     Indication: HYPERTENSION
     Dosage: 5 MG, QD
     Route: 048

REACTIONS (8)
  - Tumour invasion [Recovering/Resolving]
  - Hepatic enzyme increased [Recovering/Resolving]
  - Bone lesion [Not Recovered/Not Resolved]
  - Liver disorder [Unknown]
  - Hepatic steatosis [Unknown]
  - Restless legs syndrome [Unknown]
  - Angiofibroma [Unknown]
  - Hepatic necrosis [Recovering/Resolving]

NARRATIVE: CASE EVENT DATE: 201802
